FAERS Safety Report 7432693-9 (Version None)
Quarter: 2011Q2

REPORT INFORMATION
  Report Type: 
  Country: None (occurrence: None)
  Receive Date: 20110415
  Receipt Date: 20110331
  Transmission Date: 20111010
  Serious: Yes (Hospitalization)
  Sender: FDA-Public Use
  Company Number: AUR-APL-2010-02496

PATIENT
  Age: 76 Year
  Sex: Female
  Weight: 60.33 kg

DRUGS (12)
  1. NORVASC [Suspect]
     Dosage: 10MG, DAILY
  2. EFFEXOR XR [Suspect]
     Dosage: 150MG, DAILY
  3. ASCORBIC ACID [Concomitant]
  4. COLECALCIFEROL [Concomitant]
  5. ASPIRIN [Concomitant]
  6. HYDROCHLOROTHIAZIDE [Suspect]
     Dosage: 25MG, DAILY
  7. LISINOPRIL [Suspect]
     Dosage: 40MG, DAILY
  8. SPIRIVA [Suspect]
     Dosage: 1PUFF, DAILY
  9. NO SUBJECT DRUG [Suspect]
     Indication: BREAST CANCER
  10. ARIMIDEX [Suspect]
     Indication: BREAST CANCER
     Dosage: 1MG, DAILY
     Dates: start: 20051213, end: 20100804
  11. FORTEO [Suspect]
     Dosage: 20UG, DAILY, SQ
  12. FISH OIL HYDROGENATED [Concomitant]

REACTIONS (29)
  - DYSPNOEA [None]
  - BUNDLE BRANCH BLOCK LEFT [None]
  - TROPONIN I INCREASED [None]
  - MYOCARDIAL INFARCTION [None]
  - ELECTROCARDIOGRAM ABNORMAL [None]
  - CARDIAC ENZYMES INCREASED [None]
  - HYPONATRAEMIA [None]
  - EJECTION FRACTION DECREASED [None]
  - BLOOD GLUCOSE INCREASED [None]
  - BLOOD SODIUM DECREASED [None]
  - MITRAL VALVE CALCIFICATION [None]
  - BLOOD UREA INCREASED [None]
  - BLOOD POTASSIUM DECREASED [None]
  - MITRAL VALVE PROLAPSE [None]
  - SINUS TACHYCARDIA [None]
  - CARDIAC FAILURE CONGESTIVE [None]
  - PRODUCTIVE COUGH [None]
  - NASOPHARYNGITIS [None]
  - CHEST X-RAY ABNORMAL [None]
  - MYOCARDIAL ISCHAEMIA [None]
  - TRICUSPID VALVE INCOMPETENCE [None]
  - HYPOKALAEMIA [None]
  - HYPOXIA [None]
  - CARDIAC OUTPUT DECREASED [None]
  - CARDIOMYOPATHY [None]
  - SPUTUM DISCOLOURED [None]
  - BLOOD CHLORIDE DECREASED [None]
  - BLOOD CREATININE INCREASED [None]
  - PULMONARY HYPERTENSION [None]
